FAERS Safety Report 4653760-9 (Version None)
Quarter: 2005Q2

REPORT INFORMATION
  Report Type: 
  Country: None (occurrence: None)
  Receive Date: 20050504
  Receipt Date: 20050420
  Transmission Date: 20051028
  Serious: Yes (Disabling, Other)
  Sender: FDA-Public Use
  Company Number: DSA_81123_2004

PATIENT
  Age: 46 Year
  Sex: Female
  Weight: 68.0396 kg

DRUGS (6)
  1. XYREM [Suspect]
     Indication: INSOMNIA
     Dosage: 2.25 G TWICE NIGHTLY PO
     Route: 048
     Dates: start: 20040801, end: 20040914
  2. XYREM [Suspect]
     Indication: INSOMNIA
     Dosage: 3 G TWICE NIGHTLY PO
     Route: 048
     Dates: start: 20040914, end: 20040924
  3. XYREM [Suspect]
     Indication: INSOMNIA
     Dosage: 2.25 G TWICE NIGHTLY PO
     Route: 048
     Dates: start: 20040924, end: 20040929
  4. ZONEGRAN [Concomitant]
  5. NORTRIPTYLINE HCL [Concomitant]
  6. LITHIUM [Concomitant]

REACTIONS (2)
  - ALOPECIA [None]
  - MIGRAINE [None]
